FAERS Safety Report 9438549 (Version 2)
Quarter: 2013Q3

REPORT INFORMATION
  Report Type: Spontaneous
  Country: US (occurrence: US)
  Receive Date: 20130802
  Receipt Date: 20130829
  Transmission Date: 20140515
  Serious: No
  Sender: FDA-Public Use
  Company Number: US-BAXTER-2013BAX029570

PATIENT
  Age: 48 Year
  Sex: Male
  Weight: 59 kg

DRUGS (3)
  1. FEIBA [Suspect]
     Indication: HAEMOPHILIA
     Route: 065
  2. FEIBA [Suspect]
     Indication: FACTOR VIII DEFICIENCY
  3. FEIBA [Suspect]
     Indication: FACTOR VIII INHIBITION

REACTIONS (3)
  - Injection site swelling [Recovered/Resolved]
  - Product reconstitution issue [Recovered/Resolved]
  - Injection site bruising [Recovered/Resolved]
